FAERS Safety Report 4836653-3 (Version None)
Quarter: 2005Q4

REPORT INFORMATION
  Report Type: 
  Country: None (occurrence: None)
  Receive Date: 20051123
  Receipt Date: 20051118
  Transmission Date: 20060501
  Serious: Yes (Hospitalization)
  Sender: FDA-Public Use
  Company Number: JP-ABBOTT-05P-087-0317737-00

PATIENT
  Sex: Female

DRUGS (8)
  1. KLARICID [Suspect]
     Indication: BRONCHITIS
     Route: 048
     Dates: start: 20051105, end: 20051114
  2. CARBOCISTEINE LYSINE [Concomitant]
     Indication: BRONCHITIS
     Route: 048
     Dates: start: 20051105, end: 20051114
  3. DEXTROMETHORPHAN HYDROBROMIDE [Concomitant]
     Indication: BRONCHITIS
     Route: 048
     Dates: start: 20051105, end: 20051114
  4. TULOBUTEROL [Concomitant]
     Indication: BRONCHITIS
     Dates: start: 20051105, end: 20051114
  5. SHOUSAIKOTOU [Concomitant]
     Indication: BRONCHITIS
     Dosage: 3 PACKS
     Route: 048
     Dates: start: 20051105, end: 20051111
  6. SHIN-ISEIHAITO [Concomitant]
     Indication: BRONCHITIS
     Route: 048
     Dates: start: 20051105, end: 20051111
  7. SAIBOKU-TO [Concomitant]
     Indication: BRONCHITIS
     Route: 048
     Dates: start: 20051111, end: 20051114
  8. ALBUTEROL SULFATE HFA [Concomitant]
     Indication: BRONCHITIS
     Route: 055
     Dates: start: 20051111

REACTIONS (5)
  - DYSPNOEA [None]
  - GENERALISED ERYTHEMA [None]
  - LIVER DISORDER [None]
  - PYREXIA [None]
  - RASH [None]
